FAERS Safety Report 8030147-2 (Version None)
Quarter: 2012Q1

REPORT INFORMATION
  Report Type: 
  Country: None (occurrence: None)
  Receive Date: 20120109
  Receipt Date: 20111231
  Transmission Date: 20120608
  Serious: Yes (Hospitalization)
  Sender: FDA-Public Use
  Company Number: US-BAYER-2011-023229

PATIENT
  Age: 48 Year
  Sex: Female
  Weight: 54 kg

DRUGS (4)
  1. YAZ [Suspect]
     Indication: ORAL CONTRACEPTION
     Dosage: UNK
     Route: 048
     Dates: start: 20090901, end: 20100301
  2. COUMADIN [Concomitant]
  3. IBUPROFEN [Concomitant]
     Dosage: 100 MG, PRN
  4. HEPARIN [Concomitant]

REACTIONS (2)
  - ASTHENIA [None]
  - PULMONARY EMBOLISM [None]
